FAERS Safety Report 11254420 (Version 3)
Quarter: 2015Q3

REPORT INFORMATION
  Report Type: Spontaneous
  Country: US (occurrence: US)
  Receive Date: 20150709
  Receipt Date: 20150731
  Transmission Date: 20151125
  Serious: No
  Sender: FDA-Public Use
  Company Number: US-PFIZER INC-2015224086

PATIENT
  Age: 53 Year
  Sex: Female
  Weight: 100 kg

DRUGS (2)
  1. AROMASIN [Suspect]
     Active Substance: EXEMESTANE
     Indication: ADJUVANT THERAPY
  2. AROMASIN [Suspect]
     Active Substance: EXEMESTANE
     Indication: INVASIVE DUCTAL BREAST CARCINOMA
     Dosage: UNK

REACTIONS (3)
  - Adnexa uteri pain [Unknown]
  - Bone pain [Unknown]
  - Fatigue [Unknown]
